FAERS Safety Report 4923345-5 (Version None)
Quarter: 2006Q1

REPORT INFORMATION
  Report Type: 
  Country: None (occurrence: None)
  Receive Date: 20060227
  Receipt Date: 20060221
  Transmission Date: 20060701
  Serious: Yes (Other)
  Sender: FDA-Public Use
  Company Number: 2006UW02962

PATIENT
  Age: 46 Year
  Sex: Female
  Weight: 107 kg

DRUGS (5)
  1. SEROQUEL [Suspect]
     Indication: SLEEP DISORDER
     Route: 048
  2. SEROQUEL [Suspect]
     Route: 048
  3. INSULIN [Concomitant]
  4. DIABETES PILL [Concomitant]
  5. DEMEROL [Concomitant]

REACTIONS (3)
  - DIABETES MELLITUS [None]
  - HEPATIC STEATOSIS [None]
  - RENAL FAILURE [None]
